FAERS Safety Report 22296335 (Version 1)
Quarter: 2023Q2

REPORT INFORMATION
  Report Type: Report from Study
  Country: US (occurrence: US)
  Receive Date: 20230508
  Receipt Date: 20230508
  Transmission Date: 20230722
  Serious: Yes (Hospitalization)
  Sender: FDA-Public Use
  Company Number: US-HORIZON THERAPEUTICS-HZN-2022-007327

PATIENT

DRUGS (22)
  1. TEPROTUMUMAB-TRBW [Suspect]
     Active Substance: TEPROTUMUMAB-TRBW
     Indication: Endocrine ophthalmopathy
     Dosage: INFUSION-806 MG, 90 MINUTES
     Route: 041
     Dates: start: 20220902, end: 20220902
  2. TEPROTUMUMAB-TRBW [Suspect]
     Active Substance: TEPROTUMUMAB-TRBW
     Dosage: INFUSION-1611 MG, 85 MINUTES, 10:36
     Route: 041
     Dates: start: 20220922, end: 20220922
  3. TEPROTUMUMAB-TRBW [Suspect]
     Active Substance: TEPROTUMUMAB-TRBW
     Dosage: INFUSION-1611 MG, 62 MIN
     Route: 041
     Dates: start: 20221104, end: 20221104
  4. TEPROTUMUMAB-TRBW [Suspect]
     Active Substance: TEPROTUMUMAB-TRBW
     Dosage: 1473 MG, 66 MIN
     Route: 041
     Dates: start: 20221123
  5. TEPROTUMUMAB-TRBW [Suspect]
     Active Substance: TEPROTUMUMAB-TRBW
     Dosage: 1473 MG, 54 MIN
     Route: 041
     Dates: start: 20221214
  6. TEPROTUMUMAB-TRBW [Suspect]
     Active Substance: TEPROTUMUMAB-TRBW
     Dosage: 1473 MG, 60 MIN
     Route: 041
     Dates: start: 20230106
  7. TEPROTUMUMAB-TRBW [Suspect]
     Active Substance: TEPROTUMUMAB-TRBW
     Dosage: 1473 MG
     Route: 041
     Dates: start: 20230127
  8. LISINOPRIL [Concomitant]
     Active Substance: LISINOPRIL
     Indication: Hypertension
     Dosage: 20 MG, QD
     Route: 048
     Dates: start: 2015
  9. LISINOPRIL [Concomitant]
     Active Substance: LISINOPRIL
     Dosage: 10 MG, ONCE DAILY
     Route: 048
     Dates: start: 2015
  10. METHIMAZOLE [Concomitant]
     Active Substance: METHIMAZOLE
     Indication: Hyperthyroidism
     Dosage: 10 MG, QD
     Route: 048
     Dates: start: 2019, end: 20220914
  11. METHIMAZOLE [Concomitant]
     Active Substance: METHIMAZOLE
     Dosage: 10 MG, QD
     Route: 048
     Dates: start: 20220922
  12. VITAMIN D3 [Concomitant]
     Active Substance: CHOLECALCIFEROL
     Indication: Supplementation therapy
     Dosage: 1000 IU, QD
     Route: 048
     Dates: start: 2021
  13. TIZANIDINE [Concomitant]
     Active Substance: TIZANIDINE
     Indication: Muscle spasms
     Dosage: 2 MG, PRN
     Route: 048
     Dates: start: 2022
  14. LUTEIN [Concomitant]
     Active Substance: LUTEIN
     Indication: Supplementation therapy
     Dosage: 20 MG, QD
     Route: 048
     Dates: start: 2022
  15. INSULIN GLARGINE [Concomitant]
     Active Substance: INSULIN GLARGINE
     Indication: Diabetes mellitus
     Dosage: 20, BID
     Route: 058
     Dates: start: 20220923, end: 20221007
  16. INSULIN LISPRO [Concomitant]
     Active Substance: INSULIN LISPRO
     Indication: Diabetes mellitus
     Dosage: 10, TID
     Route: 058
     Dates: start: 20220923, end: 20221007
  17. INSULIN LISPRO [Concomitant]
     Active Substance: INSULIN LISPRO
     Indication: Diabetes mellitus
     Dosage: 20 QAM AND 18 QPM (75/25)
     Route: 058
     Dates: start: 20221007
  18. INSULIN BEEF [Concomitant]
     Active Substance: INSULIN BEEF
     Indication: Diabetic ketoacidosis
     Dosage: 100 SLIDING SCALE
     Route: 050
     Dates: start: 20220922, end: 20220923
  19. ENOXAPARIN [Concomitant]
     Active Substance: ENOXAPARIN
     Indication: Thrombosis prophylaxis
     Dosage: 30 MG, QD
     Route: 058
     Dates: start: 20220923, end: 20220925
  20. ACETAMINOPHEN [Concomitant]
     Active Substance: ACETAMINOPHEN
     Indication: Body temperature
     Dosage: 650 MG, PRN
     Route: 048
     Dates: start: 20220924, end: 20220924
  21. ACETAMINOPHEN [Concomitant]
     Active Substance: ACETAMINOPHEN
     Indication: Pain
  22. XIGDUO XR [Concomitant]
     Active Substance: DAPAGLIFLOZIN PROPANEDIOL\METFORMIN HYDROCHLORIDE
     Indication: Diabetes mellitus
     Dosage: 10/500 MG, QD
     Route: 048
     Dates: start: 20221003

REACTIONS (1)
  - Diabetic ketoacidosis [Recovered/Resolved]

NARRATIVE: CASE EVENT DATE: 20220922
